FAERS Safety Report 6216370-8 (Version None)
Quarter: 2009Q2

REPORT INFORMATION
  Report Type: 
  Country: None (occurrence: None)
  Receive Date: 20090605
  Receipt Date: 20090527
  Transmission Date: 20091009
  Serious: Yes (Hospitalization)
  Sender: FDA-Public Use
  Company Number: US-BIOGENIDEC-2008BI005707

PATIENT
  Sex: Female

DRUGS (2)
  1. TYSABRI [Suspect]
     Indication: MULTIPLE SCLEROSIS
     Route: 042
     Dates: start: 20061205
  2. TYSABRI [Suspect]
     Route: 042
     Dates: start: 20061205

REACTIONS (4)
  - ANKLE FRACTURE [None]
  - FALL [None]
  - LOWER LIMB FRACTURE [None]
  - OSTEOARTHRITIS [None]
